FAERS Safety Report 6812353-5 (Version None)
Quarter: 2010Q2

REPORT INFORMATION
  Report Type: 
  Country: None (occurrence: None)
  Receive Date: 20100628
  Receipt Date: 20100618
  Transmission Date: 20101027
  Serious: Yes (Other)
  Sender: FDA-Public Use
  Company Number: 004540

PATIENT
  Sex: Male

DRUGS (15)
  1. ISOKET (ISOKET RETARD 60 MG) [Suspect]
     Dosage: 60 MG BID ORAL; 60 MG QD, 1 X 60 MG IN THE MORNING ORAL
     Route: 048
     Dates: end: 20090801
  2. ISOKET (ISOKET RETARD 60 MG) [Suspect]
     Dosage: 60 MG BID ORAL; 60 MG QD, 1 X 60 MG IN THE MORNING ORAL
     Route: 048
     Dates: start: 20090801
  3. PANTIPRAZOLE [Concomitant]
  4. LEVOTHYROXINE SODIUM [Concomitant]
  5. NORVASC [Concomitant]
  6. SIMVASTATIN-MEPHA [Concomitant]
  7. CLOPIDOGREL [Concomitant]
  8. UNKNOWN [Concomitant]
  9. PENTAERYTHRITOL TETRANITRATE [Concomitant]
  10. GLIMEPIRIDE [Concomitant]
  11. BLOPRESS [Concomitant]
  12. RANITIDINE [Concomitant]
  13. MEGALAC /00763701/ [Concomitant]
  14. BISOHEXAL /00802603/ [Concomitant]
  15. SIMVAHEXAL [Concomitant]

REACTIONS (12)
  - CARDIAC FAILURE [None]
  - CONDITION AGGRAVATED [None]
  - DRUG HYPERSENSITIVITY [None]
  - DRUG INTOLERANCE [None]
  - GOITRE [None]
  - HERNIA [None]
  - HYPERTENSION [None]
  - OEDEMA MOUTH [None]
  - PARALYSIS [None]
  - PHARYNGEAL OEDEMA [None]
  - SOMATISATION DISORDER [None]
  - THROAT TIGHTNESS [None]
